FAERS Safety Report 6821089-6 (Version None)
Quarter: 2010Q3

REPORT INFORMATION
  Report Type: 
  Country: None (occurrence: None)
  Receive Date: 20100707
  Receipt Date: 20071024
  Transmission Date: 20110219
  Serious: No
  Sender: FDA-Public Use
  Company Number: US-PFIZER INC-2007091448

PATIENT
  Sex: Female
  Weight: 75 kg

DRUGS (8)
  1. ZOLOFT [Suspect]
     Indication: ANXIETY
     Route: 048
     Dates: start: 20030101, end: 20061101
  2. STATINS [Suspect]
  3. ACETYLSALICYLIC ACID [Suspect]
     Dates: end: 20061101
  4. SYNTHROID [Suspect]
  5. ZYRTEC [Concomitant]
  6. NASONEX [Concomitant]
  7. PREVACID [Concomitant]
  8. VITAMINS [Concomitant]

REACTIONS (5)
  - CONTINUOUS POSITIVE AIRWAY PRESSURE [None]
  - HYPERSENSITIVITY [None]
  - NAUSEA [None]
  - SLEEP DISORDER [None]
  - URTICARIA [None]
